FAERS Safety Report 26025252 (Version 2)
Quarter: 2025Q4

REPORT INFORMATION
  Report Type: Report from Study
  Country: US (occurrence: US)
  Receive Date: 20251111
  Receipt Date: 20251118
  Transmission Date: 20260118
  Serious: Yes (Hospitalization)
  Sender: ABBVIE
  Company Number: US-ABBVIE-6540249

PATIENT
  Age: 74 Year
  Sex: Female
  Weight: 53.07 kg

DRUGS (3)
  1. FOSCARBIDOPA\FOSLEVODOPA [Suspect]
     Active Substance: FOSCARBIDOPA\FOSLEVODOPA
     Indication: Product used for unknown indication
     Route: 058
  2. MIRALAX [Concomitant]
     Active Substance: POLYETHYLENE GLYCOL 3350
     Indication: Constipation
  3. SINEMET [Concomitant]
     Active Substance: CARBIDOPA\LEVODOPA
     Indication: Parkinson^s disease

REACTIONS (10)
  - Somnolence [Recovered/Resolved]
  - Infusion site haemorrhage [Recovered/Resolved]
  - Needle issue [Recovered/Resolved]
  - Device occlusion [Recovered/Resolved]
  - Infusion site infection [Recovered/Resolved]
  - Infusion site erythema [Recovered/Resolved]
  - Infusion site pain [Unknown]
  - Infusion site swelling [Recovered/Resolved]
  - Scar [Unknown]
  - Scar pain [Unknown]

NARRATIVE: CASE EVENT DATE: 20251026
